FAERS Safety Report 8062812-5 (Version None)
Quarter: 2012Q1

REPORT INFORMATION
  Report Type: 
  Country: None (occurrence: None)
  Receive Date: 20120123
  Receipt Date: 20120117
  Transmission Date: 20120608
  Serious: Yes (Hospitalization)
  Sender: FDA-Public Use
  Company Number: DE-ROCHE-1002764

PATIENT
  Sex: Male
  Weight: 92.5 kg

DRUGS (5)
  1. CARBOPLATIN [Suspect]
     Dosage: 4 AUC
     Dates: start: 20111014
  2. PEMETREXED DISODIUM [Suspect]
     Indication: NON-SMALL CELL LUNG CANCER
     Route: 042
     Dates: start: 20110923
  3. AVASTIN [Suspect]
     Indication: NON-SMALL CELL LUNG CANCER
     Route: 042
     Dates: start: 20110923
  4. PEMETREXED DISODIUM [Suspect]
     Dates: start: 20111014
  5. CARBOPLATIN [Suspect]
     Indication: NON-SMALL CELL LUNG CANCER
     Dosage: 5 AUC
     Route: 042
     Dates: start: 20110923

REACTIONS (4)
  - LUNG INFECTION [None]
  - DIARRHOEA [None]
  - PNEUMONIA [None]
  - CHOLECYSTITIS [None]
